FAERS Safety Report 7063071-2 (Version None)
Quarter: 2010Q4

REPORT INFORMATION
  Report Type: 
  Country: None (occurrence: None)
  Receive Date: 20101026
  Receipt Date: 20100419
  Transmission Date: 20110411
  Serious: No
  Sender: FDA-Public Use
  Company Number: US-PFIZER INC-2010049350

PATIENT
  Sex: Male
  Weight: 92.517 kg

DRUGS (7)
  1. LIPITOR [Suspect]
     Dosage: UNK
     Dates: start: 20090101
  2. NEXIUM [Concomitant]
     Indication: DIVERTICULUM OESOPHAGEAL
     Dosage: 40 MG, 1X/DAY
  3. PREDNISONE [Concomitant]
     Indication: MUSCULOSKELETAL PAIN
     Dosage: 5 MG, 2X/DAY
  4. LASIX [Concomitant]
     Dosage: 40 MG, 1X/DAY
  5. KLOR-CON [Concomitant]
     Dosage: 20 MEQ, UNK
  6. TOPROL-XL [Concomitant]
     Dosage: 50 MG, 1X/DAY
  7. ACETYLSALICYLIC ACID [Concomitant]
     Dosage: 325 MG, 1X/DAY

REACTIONS (4)
  - FEELING ABNORMAL [None]
  - HEADACHE [None]
  - LETHARGY [None]
  - MALAISE [None]
